FAERS Safety Report 12143553 (Version 1)
Quarter: 2016Q1

REPORT INFORMATION
  Report Type: Spontaneous
  Country: US (occurrence: US)
  Receive Date: 20160304
  Receipt Date: 20160304
  Transmission Date: 20160526
  Serious: No
  Sender: FDA-Public Use
  Company Number: US-JNJFOC-20160209815

PATIENT
  Age: 53 Year
  Sex: Male
  Weight: 79.38 kg

DRUGS (2)
  1. MENS ROGAINE EXTRA STRENGTH [Suspect]
     Active Substance: MINOXIDIL
     Indication: ALOPECIA
     Dosage: ABOUT HALF CAPFUL
     Route: 061
     Dates: start: 20160207
  2. MENS ROGAINE EXTRA STRENGTH [Suspect]
     Active Substance: MINOXIDIL
     Route: 061

REACTIONS (3)
  - Alopecia [Unknown]
  - Wrong technique in product usage process [Unknown]
  - Hair texture abnormal [Unknown]
